FAERS Safety Report 25638460 (Version 1)
Quarter: 2025Q3

REPORT INFORMATION
  Report Type: Spontaneous
  Country: US (occurrence: US)
  Receive Date: 20250804
  Receipt Date: 20250804
  Transmission Date: 20251021
  Serious: No
  Sender: PFIZER
  Company Number: US-PFIZER INC-202500064990

PATIENT
  Age: 68 Year
  Sex: Male

DRUGS (1)
  1. BRAFTOVI [Suspect]
     Active Substance: ENCORAFENIB
     Indication: Colon cancer stage IV
     Dosage: 300 MG, DAILY (TAKES FOUR CAPSULES A DAY FOR 300MG DAILY IN THE MORNING, ORALLY )
     Route: 048
     Dates: start: 2025

REACTIONS (5)
  - Aphonia [Not Recovered/Not Resolved]
  - Sinus congestion [Unknown]
  - Rhinorrhoea [Not Recovered/Not Resolved]
  - Nasal congestion [Not Recovered/Not Resolved]
  - Epistaxis [Not Recovered/Not Resolved]

NARRATIVE: CASE EVENT DATE: 20250101
